FAERS Safety Report 5472757-2 (Version None)
Quarter: 2007Q4

REPORT INFORMATION
  Report Type: 
  Country: None (occurrence: None)
  Receive Date: 20071001
  Receipt Date: 20070227
  Transmission Date: 20080405
  Serious: No
  Sender: FDA-Public Use
  Company Number: US-ASTRAZENECA-2006UW20795

PATIENT
  Age: 770 Month
  Sex: Female
  Weight: 63.5 kg

DRUGS (13)
  1. ARIMIDEX [Suspect]
     Indication: BREAST CANCER
     Route: 048
     Dates: start: 20060427
  2. ZOLOFT [Concomitant]
     Route: 048
  3. COZAAR [Concomitant]
     Route: 048
  4. NORVASC [Concomitant]
     Indication: HYPERTENSION
     Route: 048
  5. ACIPHEX [Concomitant]
     Route: 048
  6. ZINC [Concomitant]
     Route: 048
  7. MULTI-VITAMIN [Concomitant]
     Route: 048
  8. METFORMIN HCL [Concomitant]
     Route: 048
  9. SUCRALFATE [Concomitant]
     Route: 048
  10. LORATADINE [Concomitant]
     Route: 048
  11. ADVIL LIQUI-GELS [Concomitant]
  12. DARVOCET [Concomitant]
  13. CLONAZEPAM [Concomitant]
     Route: 048

REACTIONS (6)
  - ARTHRALGIA [None]
  - BACK PAIN [None]
  - MUSCULOSKELETAL STIFFNESS [None]
  - MYALGIA [None]
  - PELVIC PAIN [None]
  - TRIGGER FINGER [None]
